FAERS Safety Report 7452530-6 (Version None)
Quarter: 2011Q2

REPORT INFORMATION
  Report Type: 
  Country: None (occurrence: None)
  Receive Date: 20110502
  Receipt Date: 20100913
  Transmission Date: 20111010
  Serious: No
  Sender: FDA-Public Use
  Company Number: US-ASTRAZENECA-2010SE42876

PATIENT
  Age: 75 Year
  Sex: Female
  Weight: 54.4 kg

DRUGS (9)
  1. CALCIUM [Concomitant]
  2. VITAMIN D [Concomitant]
  3. LEVOTHYROXINE [Concomitant]
  4. DETROL [Concomitant]
  5. LISINOPRIL [Concomitant]
  6. ASPIRIN [Concomitant]
  7. FORTICAL [Concomitant]
  8. NEXIUM [Suspect]
     Indication: GASTROOESOPHAGEAL REFLUX DISEASE
     Route: 048
     Dates: start: 20100910, end: 20100912
  9. PREVASTATIN [Concomitant]

REACTIONS (7)
  - RECTAL HAEMORRHAGE [None]
  - ABDOMINAL PAIN UPPER [None]
  - CHILLS [None]
  - FATIGUE [None]
  - DIARRHOEA [None]
  - VOMITING [None]
  - HEADACHE [None]
